APPROVED DRUG PRODUCT: LEVOTHYROXINE SODIUM
Active Ingredient: LEVOTHYROXINE SODIUM
Strength: 0.175MG
Dosage Form/Route: CAPSULE;ORAL
Application: A211369 | Product #006
Applicant: ANI PHARMACEUTICALS INC
Approved: May 2, 2023 | RLD: No | RS: No | Type: DISCN